FAERS Safety Report 5756677-1 (Version None)
Quarter: 2008Q2

REPORT INFORMATION
  Report Type: 
  Country: None (occurrence: None)
  Receive Date: 20080603
  Receipt Date: 20080527
  Transmission Date: 20081010
  Serious: Yes (Other)
  Sender: FDA-Public Use
  Company Number: US-BAYER-200824134NA

PATIENT
  Sex: Female

DRUGS (1)
  1. AVELOX [Suspect]
     Indication: INGROWING NAIL
     Route: 048
     Dates: start: 20080409

REACTIONS (3)
  - ABDOMINAL PAIN UPPER [None]
  - CLOSTRIDIAL INFECTION [None]
  - TINNITUS [None]
